FAERS Safety Report 9330220 (Version 2)
Quarter: 2013Q2

REPORT INFORMATION
  Report Type: Spontaneous
  Country: US (occurrence: US)
  Receive Date: 20130604
  Receipt Date: 20130606
  Transmission Date: 20140414
  Serious: Yes (Hospitalization, Other)
  Sender: FDA-Public Use
  Company Number: US-B.I. PHARMACEUTICALS,INC./RIDGEFIELD-2013-BI-15401BP

PATIENT
  Age: 72 Year
  Sex: Male

DRUGS (1)
  1. TRADJENTA [Suspect]

REACTIONS (2)
  - Pancreatitis acute [Unknown]
  - Nodule [Unknown]
